FAERS Safety Report 13825176 (Version 1)
Quarter: 2017Q3

REPORT INFORMATION
  Report Type: Report from Study
  Country: US (occurrence: US)
  Receive Date: 20170802
  Receipt Date: 20170802
  Transmission Date: 20171127
  Serious: Yes (Other)
  Sender: FDA-Public Use
  Company Number: US-SA-2017SA137791

PATIENT
  Age: 69 Year
  Sex: Female

DRUGS (1)
  1. CEREZYME [Suspect]
     Active Substance: IMIGLUCERASE
     Dosage: DOSE: 1600.00?FREQUENCY: Q2
     Route: 041
     Dates: start: 19980909

REACTIONS (1)
  - Arthropathy [Recovering/Resolving]
